FAERS Safety Report 23017520 (Version 1)
Quarter: 2023Q4

REPORT INFORMATION
  Report Type: Spontaneous
  Country: US (occurrence: US)
  Receive Date: 20231003
  Receipt Date: 20231003
  Transmission Date: 20240110
  Serious: Yes (Other)
  Sender: FDA-Public Use
  Company Number: US-CIPLA LTD.-2023US05770

PATIENT

DRUGS (4)
  1. TOPIRAMATE [Interacting]
     Active Substance: TOPIRAMATE
     Indication: Product used for unknown indication
     Dosage: UNK
     Route: 065
  2. CLOBAZAM [Interacting]
     Active Substance: CLOBAZAM
     Indication: Product used for unknown indication
     Dosage: UNK
     Route: 065
  3. DOXEPIN [Interacting]
     Active Substance: DOXEPIN
     Indication: Insomnia
     Dosage: UPTITRATED TO 300 MG NIGHTLY (4-41 MG/KG)
     Route: 065
  4. DOXEPIN [Interacting]
     Active Substance: DOXEPIN
     Dosage: UNK
     Route: 065

REACTIONS (7)
  - Condition aggravated [Recovered/Resolved]
  - Electrocardiogram QRS complex prolonged [Unknown]
  - Seizure [Recovered/Resolved]
  - Ataxia [Unknown]
  - Drug interaction [Unknown]
  - Toxicity to various agents [Unknown]
  - Confusional state [Unknown]
